FAERS Safety Report 20968848 (Version 1)
Quarter: 2022Q2

REPORT INFORMATION
  Report Type: Spontaneous
  Country: US (occurrence: US)
  Receive Date: 20220616
  Receipt Date: 20220616
  Transmission Date: 20220721
  Serious: Yes (Death, Other)
  Sender: FDA-Public Use
  Company Number: US-PFIZER INC-PV202200000005

PATIENT

DRUGS (16)
  1. CYTARABINE [Suspect]
     Active Substance: CYTARABINE
     Indication: Histiocytosis
     Dosage: LOW DOSE
  2. CYTARABINE [Suspect]
     Active Substance: CYTARABINE
     Indication: Bone marrow disorder
  3. CYTARABINE [Suspect]
     Active Substance: CYTARABINE
     Indication: Transaminases increased
  4. CYTARABINE [Suspect]
     Active Substance: CYTARABINE
     Indication: Serum ferritin increased
  5. ETOPOSIDE [Suspect]
     Active Substance: ETOPOSIDE
     Indication: Haemophagocytic lymphohistiocytosis
     Dosage: UNK
  6. ETOPOSIDE [Suspect]
     Active Substance: ETOPOSIDE
     Indication: Bone marrow disorder
  7. ETOPOSIDE [Suspect]
     Active Substance: ETOPOSIDE
     Indication: Transaminases increased
  8. ETOPOSIDE [Suspect]
     Active Substance: ETOPOSIDE
     Indication: Serum ferritin increased
  9. EMAPALUMAB [Concomitant]
     Active Substance: EMAPALUMAB
     Indication: Bone marrow disorder
     Dosage: UNK
  10. EMAPALUMAB [Concomitant]
     Active Substance: EMAPALUMAB
     Indication: Histiocytosis
  11. EMAPALUMAB [Concomitant]
     Active Substance: EMAPALUMAB
     Indication: Serum ferritin increased
  12. EMAPALUMAB [Concomitant]
     Active Substance: EMAPALUMAB
     Indication: Transaminases increased
  13. DEXAMETHASONE [Concomitant]
     Active Substance: DEXAMETHASONE
     Indication: Histiocytosis
     Dosage: HIGH DOSE,ON DOL 6.
  14. DEXAMETHASONE [Concomitant]
     Active Substance: DEXAMETHASONE
     Indication: Bone marrow disorder
  15. DEXAMETHASONE [Concomitant]
     Active Substance: DEXAMETHASONE
     Indication: Transaminases increased
  16. DEXAMETHASONE [Concomitant]
     Active Substance: DEXAMETHASONE
     Indication: Serum ferritin increased

REACTIONS (2)
  - Urosepsis [Fatal]
  - Lymphocyte count decreased [Fatal]
